FAERS Safety Report 5227294-7 (Version None)
Quarter: 2007Q1

REPORT INFORMATION
  Report Type: 
  Country: None (occurrence: None)
  Receive Date: 20070202
  Receipt Date: 20070124
  Transmission Date: 20070707
  Serious: Yes (Death, Hospitalization)
  Sender: FDA-Public Use
  Company Number: JP-ROCHE-477774

PATIENT
  Age: 58 Year
  Sex: Male
  Weight: 32 kg

DRUGS (7)
  1. PEGASYS [Suspect]
     Route: 058
     Dates: start: 20060815, end: 20060905
  2. PEGASYS [Suspect]
     Route: 058
     Dates: start: 20060919, end: 20060919
  3. GLYCYRON [Concomitant]
     Route: 048
     Dates: start: 20060801, end: 20061221
  4. PROHEPARUM [Concomitant]
     Route: 048
     Dates: start: 20060801, end: 20061221
  5. URSO [Concomitant]
     Route: 048
     Dates: start: 20060801, end: 20061221
  6. FERO-GRADUMET [Concomitant]
     Route: 048
     Dates: start: 20060801, end: 20061012
  7. LOPEMIN [Concomitant]
     Route: 048
     Dates: start: 20060811, end: 20061221

REACTIONS (4)
  - ASPERGILLOSIS [None]
  - INTERSTITIAL LUNG DISEASE [None]
  - MALAISE [None]
  - SUDDEN DEATH [None]
